FAERS Safety Report 8322461-8 (Version None)
Quarter: 2012Q2

REPORT INFORMATION
  Report Type: 
  Country: None (occurrence: None)
  Receive Date: 20120430
  Receipt Date: 20100106
  Transmission Date: 20120825
  Serious: No
  Sender: FDA-Public Use
  Company Number: US-TEVA-2010000068

PATIENT
  Sex: Female
  Weight: 54.48 kg

DRUGS (5)
  1. LEXAPRO [Concomitant]
     Dates: start: 20080601
  2. ZYRTEC [Concomitant]
  3. WELLBUTRIN [Concomitant]
  4. NUVIGIL [Suspect]
     Indication: ATTENTION DEFICIT/HYPERACTIVITY DISORDER
     Dosage: 150 MILLIGRAM;
     Route: 048
     Dates: start: 20100102
  5. KLONOPIN [Concomitant]

REACTIONS (3)
  - DEPRESSION [None]
  - EUPHORIC MOOD [None]
  - DRUG INEFFECTIVE FOR UNAPPROVED INDICATION [None]
